FAERS Safety Report 4642157-3 (Version None)
Quarter: 2005Q2

REPORT INFORMATION
  Report Type: 
  Country: None (occurrence: None)
  Receive Date: 20050420
  Receipt Date: 20050407
  Transmission Date: 20051028
  Serious: Yes (Hospitalization)
  Sender: FDA-Public Use
  Company Number: 2005CG00712

PATIENT
  Age: 63 Year
  Sex: Male

DRUGS (4)
  1. OMEPRAZOLE [Suspect]
     Dates: end: 20050131
  2. EFFERALGAN CODEINE [Suspect]
     Dates: end: 20050131
  3. TAHOR [Suspect]
     Dosage: 1 DF DAILY PO
     Route: 048
     Dates: end: 20050131
  4. VOLTAREN [Suspect]
     Dates: end: 20050131

REACTIONS (1)
  - HYPOKALAEMIA [None]
